FAERS Safety Report 8664545 (Version 2)
Quarter: 2013Q1

REPORT INFORMATION
  Report Type: Report from Study
  Country: JP (occurrence: JP)
  Receive Date: 20120713
  Receipt Date: 20130220
  Transmission Date: 20140127
  Serious: No
  Sender: FDA-Public Use
  Company Number: JP-009507513-1207JPN003548

PATIENT
  Age: 76 Year
  Sex: Female

DRUGS (8)
  1. AROGLYCEM [Suspect]
     Indication: HYPOGLYCAEMIA
     Dosage: 50 MG, BID
     Route: 048
     Dates: start: 20120625, end: 20120627
  2. AROGLYCEM [Suspect]
     Dosage: 75 MG, BID
     Route: 048
     Dates: start: 20120628, end: 20120701
  3. AROGLYCEM [Suspect]
     Dosage: 100 MG, BID
     Route: 048
     Dates: start: 20120702, end: 20120706
  4. DECADRON PHOSPHATE INJECTION [Concomitant]
     Indication: HYPOGLYCAEMIA
     Dosage: .5 MG, QD FORMULATION: POR
     Route: 048
     Dates: end: 20120627
  5. URSO [Concomitant]
     Indication: LIVER DISORDER
     Dosage: 600 MG, QD, FORMULATION: POR
     Route: 048
  6. YOKU-KAN-SAN [Concomitant]
     Indication: DEMENTIA
     Dosage: 7.5 G, QD, FORMULATION: POR
     Route: 048
  7. MEMARY [Concomitant]
     Indication: DEMENTIA
     Dosage: 5 MG, QD  FORMULATION: POR
     Route: 048
  8. SOLDEM 3AG [Concomitant]
     Indication: INSULINOMA
     Dosage: 1000 ML, QD
     Route: 042
     Dates: end: 20120706

REACTIONS (1)
  - Platelet count decreased [Recovered/Resolved]
